FAERS Safety Report 16505778 (Version 4)
Quarter: 2019Q4

REPORT INFORMATION
  Report Type: Report from Study
  Country: US (occurrence: US)
  Receive Date: 20190701
  Receipt Date: 20191231
  Transmission Date: 20200122
  Serious: Yes (Hospitalization, Other)
  Sender: FDA-Public Use
  Company Number: US-CLOVIS ONCOLOGY-CLO-2019-001138

PATIENT
  Age: 68 Year
  Sex: Female

DRUGS (6)
  1. RUBRACA [Suspect]
     Active Substance: RUCAPARIB CAMSYLATE
     Dosage: 600 MG, BID
     Route: 048
     Dates: start: 201907, end: 2019
  2. RUBRACA [Suspect]
     Active Substance: RUCAPARIB CAMSYLATE
     Dosage: 600 MG, BID
     Route: 048
     Dates: start: 20190516, end: 2019
  3. RUBRACA [Suspect]
     Active Substance: RUCAPARIB CAMSYLATE
     Dosage: 500 MG, BID
     Route: 048
     Dates: start: 20190914, end: 201911
  4. RUBRACA [Suspect]
     Active Substance: RUCAPARIB CAMSYLATE
     Dosage: 300 MG, BID
     Route: 048
     Dates: start: 201911
  5. RUBRACA [Suspect]
     Active Substance: RUCAPARIB CAMSYLATE
     Dosage: 300 MG, QD
     Route: 048
     Dates: start: 201907, end: 201907
  6. RUBRACA [Suspect]
     Active Substance: RUCAPARIB CAMSYLATE
     Indication: FALLOPIAN TUBE CANCER
     Dosage: 600 MG, BID
     Route: 048
     Dates: start: 20190516, end: 201907

REACTIONS (12)
  - Hepatic enzyme increased [Not Recovered/Not Resolved]
  - Nausea [Not Recovered/Not Resolved]
  - Blood count abnormal [Recovering/Resolving]
  - Dysgeusia [Not Recovered/Not Resolved]
  - Diarrhoea [Unknown]
  - Vomiting [Not Recovered/Not Resolved]
  - Asthenia [Recovered/Resolved]
  - Fatigue [Not Recovered/Not Resolved]
  - Hypophagia [Unknown]
  - Decreased appetite [Recovered/Resolved]
  - Product dose omission [Unknown]
  - Dyspnoea [Recovered/Resolved]

NARRATIVE: CASE EVENT DATE: 2019
